FAERS Safety Report 4516025-1 (Version None)
Quarter: 2004Q4

REPORT INFORMATION
  Report Type: 
  Country: None (occurrence: None)
  Receive Date: 20041129
  Receipt Date: 20041112
  Transmission Date: 20050328
  Serious: Yes (Hospitalization, Other)
  Sender: FDA-Public Use
  Company Number: 2004097038

PATIENT
  Age: 40 Year
  Sex: Female
  Weight: 82.5 kg

DRUGS (6)
  1. CELEBREX [Suspect]
     Indication: ARTHRALGIA
     Dosage: (2 IN 1 D), ORAL
     Route: 048
     Dates: start: 20041021, end: 20041022
  2. ACETAMINOPHEN [Concomitant]
  3. LEVOTHYROXINE SODIUM [Concomitant]
  4. FUROSEMIDE [Concomitant]
  5. CODEINE (CODEINE) [Concomitant]
  6. DOTHIEPIN HYDROCHLORIDE [Concomitant]

REACTIONS (1)
  - LOSS OF CONSCIOUSNESS [None]
